FAERS Safety Report 7948715-2 (Version None)
Quarter: 2011Q4

REPORT INFORMATION
  Report Type: 
  Country: None (occurrence: None)
  Receive Date: 20111130
  Receipt Date: 20111118
  Transmission Date: 20120403
  Serious: Yes (Hospitalization)
  Sender: FDA-Public Use
  Company Number: JP-SANOFI-AVENTIS-2011SA076865

PATIENT
  Sex: Male

DRUGS (2)
  1. DOCETAXEL [Suspect]
     Dosage: DAILY DOSE: 70
     Route: 065
     Dates: start: 20111108, end: 20111108
  2. TS-1 [Concomitant]
     Dosage: DAILY DOSE: 120
     Dates: start: 20110909, end: 20111108

REACTIONS (3)
  - C-REACTIVE PROTEIN INCREASED [None]
  - INTERSTITIAL LUNG DISEASE [None]
  - DYSPNOEA EXERTIONAL [None]
